FAERS Safety Report 23983287 (Version 5)
Quarter: 2025Q3

REPORT INFORMATION
  Report Type: Spontaneous
  Country: EU (occurrence: EU)
  Receive Date: 20240617
  Receipt Date: 20250709
  Transmission Date: 20251021
  Serious: Yes (Hospitalization, Other)
  Sender: NOVARTIS
  Company Number: EU-SANDOZ-SDZ2024NL057182

PATIENT
  Age: 42 Year
  Sex: Male
  Weight: 65.9 kg

DRUGS (24)
  1. CLOZAPINE [Interacting]
     Active Substance: CLOZAPINE
     Indication: Schizoaffective disorder
     Route: 065
     Dates: start: 2005, end: 2018
  2. CLOZAPINE [Interacting]
     Active Substance: CLOZAPINE
     Route: 065
     Dates: start: 201901
  3. CLOZAPINE [Interacting]
     Active Substance: CLOZAPINE
     Dosage: 450 MG, QD (DOSE DECREASED)
     Route: 065
  4. CLOZAPINE [Interacting]
     Active Substance: CLOZAPINE
     Dosage: 550 MG, QD
     Route: 065
     Dates: start: 2021, end: 2021
  5. CLOZAPINE [Interacting]
     Active Substance: CLOZAPINE
     Dosage: 500 MG, QD
     Route: 065
     Dates: start: 2021
  6. CLOZAPINE [Interacting]
     Active Substance: CLOZAPINE
     Dosage: 600 MG, QD
     Route: 065
     Dates: start: 2021
  7. CLOZAPINE [Interacting]
     Active Substance: CLOZAPINE
     Route: 065
  8. CARBAMAZEPINE [Interacting]
     Active Substance: CARBAMAZEPINE
     Indication: Schizoaffective disorder
     Dosage: 400 MG, QD (200 MG, BID)
     Route: 065
     Dates: start: 2021, end: 2021
  9. VALPROIC ACID [Suspect]
     Active Substance: VALPROIC ACID
     Indication: Schizoaffective disorder
     Dosage: 2 G, QD
     Route: 065
     Dates: start: 202109, end: 2021
  10. FLUVOXAMINE [Suspect]
     Active Substance: FLUVOXAMINE
     Indication: Schizoaffective disorder
     Route: 065
  11. FLUVOXAMINE [Suspect]
     Active Substance: FLUVOXAMINE
     Route: 065
  12. VALPROATE SODIUM [Suspect]
     Active Substance: VALPROATE SODIUM
     Indication: Schizoaffective disorder
     Route: 065
  13. LITHIUM CARBONATE [Suspect]
     Active Substance: LITHIUM CARBONATE
     Indication: Schizoaffective disorder
     Route: 065
     Dates: end: 202105
  14. ZUCLOPENTHIXOL [Suspect]
     Active Substance: ZUCLOPENTHIXOL
     Indication: Schizoaffective disorder
     Dosage: 200 MG, BIW
     Route: 065
  15. HALOPERIDOL [Suspect]
     Active Substance: HALOPERIDOL
     Indication: Schizoaffective disorder
     Route: 048
  16. GLYCOPYRRONIUM [Concomitant]
     Active Substance: GLYCOPYRRONIUM
     Indication: Salivary hypersecretion
     Dosage: 2 MG, QD (AT BEDTIME)
     Route: 065
     Dates: start: 2021, end: 2021
  17. LACTULOSE [Concomitant]
     Active Substance: LACTULOSE
     Indication: Constipation prophylaxis
     Route: 065
     Dates: start: 2021, end: 2021
  18. DROPERIDOL [Concomitant]
     Active Substance: DROPERIDOL
     Indication: Product used for unknown indication
     Route: 065
     Dates: start: 2021, end: 2021
  19. LORAZEPAM [Concomitant]
     Active Substance: LORAZEPAM
     Indication: Product used for unknown indication
     Route: 065
     Dates: start: 2021, end: 2021
  20. MEMANTINE [Concomitant]
     Active Substance: MEMANTINE
     Indication: Product used for unknown indication
     Route: 065
     Dates: start: 2021, end: 2021
  21. FLUVOXAMINE [Concomitant]
     Active Substance: FLUVOXAMINE
     Indication: Product used for unknown indication
     Route: 065
     Dates: start: 2021
  22. FLUVOXAMINE [Concomitant]
     Active Substance: FLUVOXAMINE
     Dosage: 50 MG, QD
     Route: 065
     Dates: end: 2021
  23. HALOPERIDOL [Concomitant]
     Active Substance: HALOPERIDOL
     Indication: Product used for unknown indication
     Dosage: 225 MG, BIW (LONG-ACTING INJECTION)
     Route: 065
     Dates: start: 2020, end: 2020
  24. HALOPERIDOL [Concomitant]
     Active Substance: HALOPERIDOL
     Route: 048
     Dates: start: 2020, end: 2021

REACTIONS (8)
  - Ileus paralytic [Recovering/Resolving]
  - Constipation [Recovering/Resolving]
  - Nausea [Recovering/Resolving]
  - Vomiting [Recovering/Resolving]
  - Drug level changed [Unknown]
  - Drug interaction [Unknown]
  - Antipsychotic drug level decreased [Unknown]
  - Drug ineffective [Unknown]

NARRATIVE: CASE EVENT DATE: 20210101
